FAERS Safety Report 8939079 (Version 1)
Quarter: 2012Q4

REPORT INFORMATION
  Report Type: Report from Study
  Country: CA (occurrence: CA)
  Receive Date: 20121203
  Receipt Date: 20121203
  Transmission Date: 20130627
  Serious: Yes (Other)
  Sender: FDA-Public Use
  Company Number: CA-JNJFOC-20121111647

PATIENT
  Age: 34 None
  Sex: Male
  Weight: 108 kg

DRUGS (1)
  1. REMICADE [Suspect]
     Indication: ANKYLOSING SPONDYLITIS
     Route: 042
     Dates: start: 20060927

REACTIONS (2)
  - Rectal fistula repair [Not Recovered/Not Resolved]
  - Crohn^s disease [Not Recovered/Not Resolved]
